FAERS Safety Report 11060975 (Version 3)
Quarter: 2015Q2

REPORT INFORMATION
  Report Type: Report from Study
  Country: GR (occurrence: GR)
  Receive Date: 20150424
  Receipt Date: 20150615
  Transmission Date: 20150821
  Serious: Yes (Hospitalization)
  Sender: FDA-Public Use
  Company Number: GR-AMGEN-GRCCT2015037756

PATIENT
  Age: 56 Year
  Sex: Male
  Weight: 90.4 kg

DRUGS (19)
  1. DEXAMETHASONE. [Concomitant]
     Active Substance: DEXAMETHASONE
     Dosage: 4 -20 MG, UNK
     Dates: start: 20150306, end: 20150420
  2. GARAMYCIN [Concomitant]
     Active Substance: GENTAMICIN SULFATE
     Dosage: 240 MG, UNK
     Route: 042
     Dates: start: 20150321, end: 20150330
  3. CANCIDAS [Concomitant]
     Active Substance: CASPOFUNGIN ACETATE
     Dosage: 50-70 MG, UNK
     Route: 042
     Dates: start: 20150322, end: 20150422
  4. BACTROBAN                          /00753901/ [Concomitant]
     Dosage: 20 MG, UNK
     Route: 061
     Dates: start: 20150309, end: 20150330
  5. ZOVIRAX [Concomitant]
     Active Substance: ACYCLOVIR
     Dosage: 200 MG, UNK
     Route: 048
     Dates: start: 20150306
  6. MEROPENEM. [Concomitant]
     Active Substance: MEROPENEM
     Dosage: 2 G, UNK
     Route: 042
     Dates: start: 20150321, end: 20150402
  7. CYTOSINE ARABINOSIDE [Concomitant]
     Active Substance: CYTARABINE
     Dosage: 40 MG, UNK
     Route: 037
     Dates: start: 20150306, end: 20150420
  8. COLISTIN [Concomitant]
     Active Substance: COLISTIN
     Dosage: 4500000-9000000 UNK, UNK
     Route: 042
     Dates: start: 20150321, end: 20150330
  9. BLINATUMOMAB [Suspect]
     Active Substance: BLINATUMOMAB
     Indication: ACUTE LYMPHOCYTIC LEUKAEMIA
     Dosage: 28 MUG, UNK
     Route: 041
     Dates: start: 20150309
  10. METHOTREXATE [Concomitant]
     Active Substance: METHOTREXATE
     Dosage: 12 MG, UNK
     Route: 037
     Dates: start: 20150305, end: 20150420
  11. PIPERACILLIN AND TAZOBACTAM [Concomitant]
     Active Substance: PIPERACILLIN SODIUM\TAZOBACTAM SODIUM
     Dosage: 4.5 G, UNK
     Route: 042
     Dates: start: 20150317, end: 20150321
  12. BACTRIMEL [Concomitant]
     Active Substance: SULFAMETHOXAZOLE\TRIMETHOPRIM
     Dosage: 1920 MG, UNK
     Route: 048
     Dates: start: 20150306
  13. SOLU-CORTEF [Concomitant]
     Active Substance: HYDROCORTISONE SODIUM SUCCINATE
     Dosage: 50-100 MG, UNK
     Route: 042
     Dates: start: 20150321, end: 20150402
  14. VONCON [Concomitant]
     Dosage: 1 G, UNK
     Route: 042
     Dates: start: 20150309, end: 20150409
  15. TEICOPLANIN [Concomitant]
     Active Substance: TEICOPLANIN
     Dosage: 400 MG, UNK
     Route: 042
     Dates: start: 20150319, end: 20150324
  16. CIPROFLOXACIN. [Concomitant]
     Active Substance: CIPROFLOXACIN
     Dosage: 500 MG, UNK
     Route: 048
     Dates: start: 20150327, end: 20150422
  17. NOXAFIL [Concomitant]
     Active Substance: POSACONAZOLE
     Dosage: 200 MG, UNK
     Route: 048
     Dates: start: 20150306
  18. ARIXTRA [Concomitant]
     Active Substance: FONDAPARINUX SODIUM
     Dosage: 2.5 MG, UNK
     Route: 058
     Dates: start: 2013
  19. OMEPRAZOLE. [Concomitant]
     Active Substance: OMEPRAZOLE
     Dosage: 20 MG, UNK
     Route: 042
     Dates: start: 20150309

REACTIONS (1)
  - CSF cell count abnormal [Recovered/Resolved]

NARRATIVE: CASE EVENT DATE: 20150406
